FAERS Safety Report 21806305 (Version 1)
Quarter: 2023Q1

REPORT INFORMATION
  Report Type: Report from Study
  Country: US (occurrence: US)
  Receive Date: 20230102
  Receipt Date: 20230102
  Transmission Date: 20230417
  Serious: No
  Sender: FDA-Public Use
  Company Number: US-ABBVIE-4210496

PATIENT
  Sex: Female

DRUGS (2)
  1. SKYRIZI [Suspect]
     Active Substance: RISANKIZUMAB-RZAA
     Indication: Psoriatic arthropathy
     Dosage: AT WEEK 4? FORM STRENGTH: 150 MILLIGRAM
     Route: 058
  2. Bd [Concomitant]
     Indication: Product used for unknown indication
     Dosage: PEN MINI MIS

REACTIONS (1)
  - Drug ineffective [Unknown]
